FAERS Safety Report 7209589-0 (Version None)
Quarter: 2011Q1

REPORT INFORMATION
  Report Type: 
  Country: None (occurrence: None)
  Receive Date: 20110104
  Receipt Date: 20101227
  Transmission Date: 20110831
  Serious: Yes (Hospitalization, Other)
  Sender: FDA-Public Use
  Company Number: US-PFIZER INC-2010179660

PATIENT
  Sex: Female
  Weight: 70.295 kg

DRUGS (5)
  1. LYRICA [Suspect]
     Indication: FIBROMYALGIA
     Dosage: UNK
     Route: 048
     Dates: start: 20070101, end: 20090101
  2. NEURONTIN [Suspect]
     Indication: PAIN
     Dosage: 1800 MG, UNK
     Dates: start: 20090101
  3. NEURONTIN [Suspect]
     Indication: SLEEP DISORDER
  4. LEVOTHYROXINE [Concomitant]
     Indication: HYPOTHYROIDISM
     Dosage: UNK
  5. PERCOCET [Concomitant]
     Indication: PAIN
     Dosage: 10/325 MG, AS NEEDED

REACTIONS (2)
  - HYPOTHYROIDISM [None]
  - PAIN [None]
